FAERS Safety Report 10366423 (Version 2)
Quarter: 2014Q3

REPORT INFORMATION
  Report Type: Report from Study
  Country: US (occurrence: US)
  Receive Date: 20140806
  Receipt Date: 20140806
  Transmission Date: 20150326
  Serious: Yes (Hospitalization, Other)
  Sender: FDA-Public Use
  Company Number: US-ABBVIE-12P-163-0995750-00

PATIENT
  Age: 39 Year
  Sex: Male

DRUGS (8)
  1. FENTANYL. [Concomitant]
     Active Substance: FENTANYL
     Indication: PAIN
  2. HYDROMORPHONE [Concomitant]
     Active Substance: HYDROMORPHONE
     Indication: ANKYLOSING SPONDYLITIS
  3. HUMIRA [Suspect]
     Active Substance: ADALIMUMAB
     Dates: start: 20140701
  4. CORTICOSTEROIDS [Suspect]
     Active Substance: CORTICOSTEROID NOS
     Indication: PRODUCT USED FOR UNKNOWN INDICATION
  5. HUMIRA [Suspect]
     Active Substance: ADALIMUMAB
     Indication: COLITIS ULCERATIVE
     Dates: start: 201209, end: 201212
  6. HUMIRA [Suspect]
     Active Substance: ADALIMUMAB
     Indication: ANKYLOSING SPONDYLITIS
     Dates: start: 20121003
  7. OXYCODONE [Concomitant]
     Active Substance: OXYCODONE
     Indication: ANKYLOSING SPONDYLITIS
  8. TESTOSTERONE. [Concomitant]
     Active Substance: TESTOSTERONE
     Indication: OSTEOPOROSIS
     Route: 030

REACTIONS (20)
  - Drug ineffective [Unknown]
  - Mobility decreased [Unknown]
  - Malaise [Unknown]
  - Gingivitis [Unknown]
  - Upper respiratory tract infection [Unknown]
  - Otitis externa [Unknown]
  - Activities of daily living impaired [Not Recovered/Not Resolved]
  - Ankylosing spondylitis [Not Recovered/Not Resolved]
  - Sensory disturbance [Not Recovered/Not Resolved]
  - Genital herpes [Not Recovered/Not Resolved]
  - Genital herpes [Recovered/Resolved]
  - Urinary tract infection [Unknown]
  - Abasia [Not Recovered/Not Resolved]
  - Osteonecrosis [Unknown]
  - Nasal neoplasm [Unknown]
  - Sinus disorder [Unknown]
  - Dermatitis acneiform [Not Recovered/Not Resolved]
  - Osteoporosis [Unknown]
  - Gingival pain [Unknown]
  - Aphasia [Unknown]

NARRATIVE: CASE EVENT DATE: 20121001
